FAERS Safety Report 5338659-7 (Version None)
Quarter: 2007Q2

REPORT INFORMATION
  Report Type: 
  Country: None (occurrence: None)
  Receive Date: 20070530
  Receipt Date: 20060810
  Transmission Date: 20071010
  Serious: No
  Sender: FDA-Public Use
  Company Number: A0614155A

PATIENT
  Sex: Female

DRUGS (1)
  1. RETROVIR [Suspect]
     Indication: PROPHYLAXIS
     Dosage: 100MG THREE TIMES PER DAY
     Route: 048

REACTIONS (1)
  - EXPIRED DRUG ADMINISTERED [None]
